FAERS Safety Report 10375716 (Version 1)
Quarter: 2014Q3

REPORT INFORMATION
  Report Type: Spontaneous
  Country: US (occurrence: None)
  Receive Date: 20140804
  Receipt Date: 20140804
  Transmission Date: 20150326
  Serious: Yes (Hospitalization, Other)
  Sender: FDA-Public Use
  Company Number: 1713747-2013-99909

PATIENT
  Age: 24 Year
  Sex: Female
  Weight: 58 kg

DRUGS (8)
  1. NATURALYTE [Concomitant]
     Active Substance: ACETIC ACID\SODIUM ACETATE
  2. EPOETIN ALFA [Concomitant]
     Active Substance: ERYTHROPOIETIN
  3. OPTIFLUX DIALYZER [Concomitant]
  4. 0.9% SODIUM CHLORIDE INJECTION [Suspect]
     Active Substance: SODIUM CHLORIDE
     Dates: start: 20130505
  5. COMBISET BLOODLINES [Concomitant]
  6. FRESENIUS 2008K2 HEMODIALYSIS SYSTEM [Concomitant]
  7. PARICALCITOL. [Concomitant]
     Active Substance: PARICALCITOL
  8. NITROGLYCERN [Concomitant]

REACTIONS (2)
  - Chest pain [None]
  - Device related infection [None]

NARRATIVE: CASE EVENT DATE: 20130505
